FAERS Safety Report 16960998 (Version 1)
Quarter: 2019Q4

REPORT INFORMATION
  Report Type: Spontaneous
  Country: NO (occurrence: NO)
  Receive Date: 20191025
  Receipt Date: 20191025
  Transmission Date: 20200122
  Serious: Yes (Hospitalization)
  Sender: FDA-Public Use
  Company Number: NO-TEVA-2019-NO-1128726

PATIENT
  Age: 44 Day
  Sex: Male

DRUGS (2)
  1. ACITRETIN. [Suspect]
     Active Substance: ACITRETIN
     Indication: HARLEQUIN SYNDROME
     Dosage: COMMENCED ON DAY 3 OF HIS LIFE
     Route: 048
  2. ACITRETIN. [Suspect]
     Active Substance: ACITRETIN
     Indication: HARLEQUIN SYNDROME
     Dosage: DOSE WAS INCREASED TO 1MG/KG/DAY FROM DAY 6 OF HIS LIFE
     Route: 048

REACTIONS (3)
  - Osteopenia [Unknown]
  - Lower limb fracture [Unknown]
  - Upper limb fracture [Unknown]
